FAERS Safety Report 6028947-3 (Version None)
Quarter: 2008Q4

REPORT INFORMATION
  Report Type: 
  Country: None (occurrence: None)
  Receive Date: 20081222
  Receipt Date: 20081031
  Transmission Date: 20090506
  Serious: No
  Sender: FDA-Public Use
  Company Number: ALL1-2008-03204

PATIENT
  Sex: Male

DRUGS (1)
  1. VYVANSE [Suspect]
     Dosage: 20 MG, 1/XDAY:QD, ORAL : HALF OF 20 MG. CAPSULE, 1X/DAY:QD, ORAL
     Route: 048

REACTIONS (3)
  - DECREASED APPETITE [None]
  - DRUG PRESCRIBING ERROR [None]
  - LIP DRY [None]
